FAERS Safety Report 9183745 (Version 2)
Quarter: 2013Q4

REPORT INFORMATION
  Report Type: Spontaneous
  Country: US (occurrence: US)
  Receive Date: 20130322
  Receipt Date: 20131129
  Transmission Date: 20140711
  Serious: Yes (Other)
  Sender: FDA-Public Use
  Company Number: PHEH2013US006390

PATIENT
  Sex: Female

DRUGS (1)
  1. GILENYA [Suspect]
     Dosage: UNK UKN, UNK
     Route: 048

REACTIONS (3)
  - Cerebral haemorrhage [Unknown]
  - Migraine [Unknown]
  - Headache [Unknown]
